FAERS Safety Report 21006014 (Version 1)
Quarter: 2022Q2

REPORT INFORMATION
  Report Type: Spontaneous
  Country: US (occurrence: US)
  Receive Date: 20220624
  Receipt Date: 20220624
  Transmission Date: 20220721
  Serious: Yes (Other)
  Sender: FDA-Public Use
  Company Number: US-DSPHARMA-2022SUN001906

PATIENT
  Age: 45 Year
  Sex: Female

DRUGS (1)
  1. LATUDA [Suspect]
     Active Substance: LURASIDONE HYDROCHLORIDE
     Dosage: 120 MG, QD
     Route: 048

REACTIONS (6)
  - Suicidal ideation [Unknown]
  - Illness [Unknown]
  - Feeling abnormal [Unknown]
  - Decreased activity [Unknown]
  - Dizziness [Unknown]
  - Therapy interrupted [Unknown]
